FAERS Safety Report 23453885 (Version 1)
Quarter: 2024Q1

REPORT INFORMATION
  Report Type: Report from Study
  Country: US (occurrence: US)
  Receive Date: 20240129
  Receipt Date: 20240129
  Transmission Date: 20240409
  Serious: Yes (Other)
  Sender: FDA-Public Use
  Company Number: US-ABBVIE-5604417

PATIENT
  Age: 55 Year
  Sex: Female

DRUGS (1)
  1. HUMIRA [Suspect]
     Active Substance: ADALIMUMAB
     Indication: Rheumatoid arthritis
     Route: 058
     Dates: start: 20220201

REACTIONS (4)
  - Systemic lupus erythematosus [Unknown]
  - Hidradenitis [Unknown]
  - Coeliac disease [Unknown]
  - HLA-B*27 positive [Unknown]

NARRATIVE: CASE EVENT DATE: 20220201
